FAERS Safety Report 19931811 (Version 1)
Quarter: 2021Q4

REPORT INFORMATION
  Report Type: Report from Study
  Country: DE (occurrence: DE)
  Receive Date: 20211007
  Receipt Date: 20211007
  Transmission Date: 20220303
  Serious: No
  Sender: FDA-Public Use
  Company Number: DE-ALNYLAM PHARMACEUTICALS, INC.-ALN-2019-000787

PATIENT

DRUGS (10)
  1. ONPATTRO [Suspect]
     Active Substance: PATISIRAN SODIUM
     Indication: Hereditary neuropathic amyloidosis
     Dosage: 0.3 MILLIGRAM/KILOGRAM, Q3W
     Route: 042
     Dates: start: 201810
  2. DEXAMETHASONE [Concomitant]
     Active Substance: DEXAMETHASONE
     Indication: Prophylaxis
     Dosage: 10 MILLIGRAM, Q3W
     Route: 042
     Dates: start: 201810
  3. CLEMASTINE [Concomitant]
     Active Substance: CLEMASTINE
     Indication: Prophylaxis
     Dosage: 2 MILLIGRAM, Q3W
     Route: 042
     Dates: start: 201810
  4. RANITIDINE [Concomitant]
     Active Substance: RANITIDINE
     Indication: Prophylaxis
     Dosage: 50 MILLIGRAM, Q3W
     Route: 042
     Dates: start: 201810, end: 20190920
  5. FAMOTIDINE [Concomitant]
     Active Substance: FAMOTIDINE
     Indication: Prophylaxis
     Dosage: 20 MILLIGRAM, Q3W
     Route: 048
     Dates: start: 20191011
  6. ACETAMINOPHEN [Concomitant]
     Active Substance: ACETAMINOPHEN
     Indication: Prophylaxis
     Dosage: 500 MILLIGRAM, Q3W
     Route: 048
     Dates: start: 201810
  7. DIMETHINDENE [Concomitant]
     Active Substance: DIMETHINDENE
     Indication: Swelling of eyelid
     Dosage: 20 DROPS, TID
     Dates: start: 20190929
  8. DIMETHINDENE [Concomitant]
     Active Substance: DIMETHINDENE
     Indication: Eye pruritus
  9. Prednitop [Concomitant]
     Indication: Eye pruritus
     Dosage: UNK, QD
     Dates: start: 20190929
  10. Prednitop [Concomitant]
     Indication: Swelling of eyelid

REACTIONS (2)
  - Eye pruritus [Recovered/Resolved]
  - Swelling of eyelid [Recovered/Resolved]

NARRATIVE: CASE EVENT DATE: 20190927
